FAERS Safety Report 9394513 (Version 1)
Quarter: 2013Q3

REPORT INFORMATION
  Report Type: Spontaneous
  Country: US (occurrence: US)
  Receive Date: 20130711
  Receipt Date: 20130711
  Transmission Date: 20140515
  Serious: Yes (Other)
  Sender: FDA-Public Use
  Company Number: US-PFIZER INC-2013202692

PATIENT
  Age: 60 Year
  Sex: Female
  Weight: 57.59 kg

DRUGS (1)
  1. LYRICA [Suspect]
     Indication: FIBROMYALGIA
     Dosage: 300 MG, 3X/DAY
     Dates: start: 20130703, end: 20130708

REACTIONS (8)
  - Prescribed overdose [Unknown]
  - Depressed level of consciousness [Unknown]
  - Amnesia [Unknown]
  - Asthenia [Unknown]
  - Drug intolerance [Unknown]
  - Somnolence [Unknown]
  - Feeling abnormal [Unknown]
  - Insomnia [Unknown]
